FAERS Safety Report 21747603 (Version 1)
Quarter: 2022Q4

REPORT INFORMATION
  Report Type: Report from Study
  Country: JP (occurrence: JP)
  Receive Date: 20221219
  Receipt Date: 20221219
  Transmission Date: 20230113
  Serious: Yes (Other)
  Sender: FDA-Public Use
  Company Number: JP-ASTELLAS-2022JP018309

PATIENT
  Age: 50 Year
  Sex: Male

DRUGS (6)
  1. ENFORTUMAB VEDOTIN [Suspect]
     Active Substance: ENFORTUMAB VEDOTIN
     Indication: Transitional cell carcinoma
     Route: 065
     Dates: start: 20220216
  2. ENFORTUMAB VEDOTIN [Suspect]
     Active Substance: ENFORTUMAB VEDOTIN
     Route: 065
     Dates: start: 20220316
  3. ENFORTUMAB VEDOTIN [Suspect]
     Active Substance: ENFORTUMAB VEDOTIN
     Route: 065
     Dates: start: 20220511
  4. PEMBROLIZUMAB [Suspect]
     Active Substance: PEMBROLIZUMAB
     Indication: Transitional cell carcinoma
     Dosage: UNK UNK, UNKNOWN FREQ.
     Route: 065
     Dates: start: 20201223, end: 20220111
  5. PETROLATUM [Concomitant]
     Active Substance: PETROLATUM
     Indication: Skin disorder
     Dosage: UNK UNK, TWICE DAILY
     Route: 061
     Dates: start: 20220316, end: 20220330
  6. Myser [Concomitant]
     Indication: Skin disorder
     Dosage: UNK UNK, TWICE DAILY
     Route: 061
     Dates: start: 20220316, end: 20220330

REACTIONS (2)
  - Pulmonary toxicity [Unknown]
  - Skin disorder [Recovered/Resolved]

NARRATIVE: CASE EVENT DATE: 20220316
